APPROVED DRUG PRODUCT: CEFTRIAXONE
Active Ingredient: CEFTRIAXONE SODIUM
Strength: EQ 1GM BASE/VIAL
Dosage Form/Route: INJECTABLE;INTRAMUSCULAR, INTRAVENOUS
Application: A091049 | Product #003
Applicant: ASTRAL STERITECH PVT LTD
Approved: Jun 11, 2018 | RLD: No | RS: No | Type: DISCN